FAERS Safety Report 23427550 (Version 1)
Quarter: 2024Q1

REPORT INFORMATION
  Report Type: Spontaneous
  Country: US (occurrence: US)
  Receive Date: 20240122
  Receipt Date: 20240122
  Transmission Date: 20240409
  Serious: No
  Sender: FDA-Public Use
  Company Number: US-SANDOZ-SDZ2024US006077

PATIENT
  Age: 75 Year
  Sex: Female

DRUGS (6)
  1. ATORVASTATIN [Suspect]
     Active Substance: ATORVASTATIN
     Dosage: 40 MG, QD
     Route: 048
  2. ATORVASTATIN [Suspect]
     Active Substance: ATORVASTATIN
     Indication: Product used for unknown indication
     Dosage: 5 MG, QD
     Route: 048
  3. CARVEDILOL [Suspect]
     Active Substance: CARVEDILOL
     Dosage: 40 MG, QD
     Route: 048
     Dates: start: 20231027
  4. CARVEDILOL [Suspect]
     Active Substance: CARVEDILOL
     Indication: Product used for unknown indication
     Dosage: 80 MG, QD
     Route: 048
     Dates: start: 2023
  5. ENTRESTO [Suspect]
     Active Substance: SACUBITRIL\VALSARTAN
     Dosage: 24.26 MG, BID
     Route: 048
  6. ENTRESTO [Suspect]
     Active Substance: SACUBITRIL\VALSARTAN
     Indication: Cardiac failure
     Dosage: 49.51 MG, BID
     Route: 048
     Dates: start: 202309

REACTIONS (9)
  - Nausea [Recovered/Resolved]
  - Hypotension [Recovered/Resolved]
  - Fatigue [Unknown]
  - COVID-19 [Recovered/Resolved]
  - Incorrect dose administered [Recovered/Resolved]
  - Nausea [Recovering/Resolving]
  - Hypotension [Recovered/Resolved]
  - Ejection fraction decreased [Not Recovered/Not Resolved]
  - Asthenia [Recovering/Resolving]

NARRATIVE: CASE EVENT DATE: 20230901
